FAERS Safety Report 9516327 (Version 1)
Quarter: 2013Q1

REPORT INFORMATION
  Report Type: Spontaneous
  Country: US (occurrence: None)
  Receive Date: 20130305
  Receipt Date: 20130305
  Transmission Date: 20140127
  Serious: Yes (Other)
  Sender: FDA-Public Use
  Company Number: 163-21880-12081288

PATIENT
  Age: 62 Year
  Sex: Male
  Weight: 77.11 kg

DRUGS (5)
  1. REVLIMID (LENALIDOMIDE) (25 MILLIGRAM, CAPSULES) [Suspect]
     Indication: PLASMA CELL MYELOMA
     Dosage: 21 IN 21 D
     Route: 048
     Dates: start: 20120724
  2. ALLOPURINOL [Concomitant]
  3. CALCIUM +D [Concomitant]
  4. DEXAMETHASONE [Concomitant]
  5. MULTIVITAMINS [Concomitant]

REACTIONS (1)
  - Oesophageal candidiasis [None]
